FAERS Safety Report 5567534-8 (Version None)
Quarter: 2007Q4

REPORT INFORMATION
  Report Type: 
  Country: None (occurrence: None)
  Receive Date: 20071214
  Receipt Date: 20071204
  Transmission Date: 20080405
  Serious: Yes (Hospitalization)
  Sender: FDA-Public Use
  Company Number: B0499101A

PATIENT
  Age: 44 Year
  Sex: Male

DRUGS (5)
  1. LAMOTRIGINE [Suspect]
     Indication: CONVULSION
     Dosage: 25 MG, PER DAY,
  2. PHENOBARBITONE [Concomitant]
  3. LOPINAVIR AND RITONAVIR [Concomitant]
  4. DIDANOSINE [Concomitant]
  5. LAMIVUDINE [Concomitant]

REACTIONS (5)
  - BLOOD GLUCOSE DECREASED [None]
  - HALLUCINATION [None]
  - MENINGITIS ASEPTIC [None]
  - PROTEIN TOTAL DECREASED [None]
  - WHITE BLOOD CELL COUNT DECREASED [None]
